FAERS Safety Report 8547948-4 (Version None)
Quarter: 2012Q3

REPORT INFORMATION
  Report Type: 
  Country: None (occurrence: None)
  Receive Date: 20120729
  Receipt Date: 20101116
  Transmission Date: 20120928
  Serious: Yes (Hospitalization)
  Sender: FDA-Public Use
  Company Number: US-BAYER-201038320NA

PATIENT
  Age: 32 Year
  Sex: Female
  Weight: 72.562 kg

DRUGS (9)
  1. DROSPIRENONE AND ETHINYL ESTRADIOL [Suspect]
     Indication: ACNE
  2. YAZ [Suspect]
     Indication: ACNE
  3. INDOMETHACIN [Concomitant]
     Dosage: 75 MG, UNK
     Route: 048
     Dates: start: 20030902
  4. YASMIN [Suspect]
     Indication: CONTRACEPTION
  5. PLAN B [Concomitant]
     Dosage: 0.75 MG, UNK
     Route: 048
     Dates: start: 20030820
  6. YASMIN [Suspect]
     Indication: ACNE
     Dosage: DAILY DOSE 1 DF
     Dates: start: 20030820, end: 20031101
  7. CIPROFLAXACIN [Concomitant]
     Dosage: 500 MG, UNK
     Route: 048
     Dates: start: 20030503
  8. AMOXICILLIN [Concomitant]
  9. HYDROCODONE BITARTRATE + ACETAMINOPHEN [Concomitant]
     Dosage: 5MG/500MG
     Route: 048
     Dates: start: 20030902

REACTIONS (5)
  - TACHYCARDIA [None]
  - DYSPNOEA [None]
  - BACK PAIN [None]
  - PULMONARY EMBOLISM [None]
  - SYNCOPE [None]
